FAERS Safety Report 4688033-1 (Version None)
Quarter: 2005Q2

REPORT INFORMATION
  Report Type: 
  Country: None (occurrence: None)
  Receive Date: 20050609
  Receipt Date: 20050531
  Transmission Date: 20051028
  Serious: Yes (Death, Other)
  Sender: FDA-Public Use
  Company Number: 2005081677

PATIENT
  Age: 46 Year
  Sex: Male
  Weight: 149.687 kg

DRUGS (2)
  1. GEODON [Suspect]
     Indication: ILL-DEFINED DISORDER
     Dosage: 160 MG (80 MG, 2 IN 1 D)
     Dates: start: 20040501, end: 20050201
  2. CLOZAPINE [Suspect]
     Indication: SCHIZOPHRENIA
     Dosage: 300 MG (100 MG, 3 IN 1 D), ORAL
     Route: 048
     Dates: start: 20000101, end: 20050201

REACTIONS (4)
  - FALL [None]
  - MYOCARDIAL INFARCTION [None]
  - WEIGHT INCREASED [None]
  - WHITE BLOOD CELL COUNT INCREASED [None]
